FAERS Safety Report 16023287 (Version 1)
Quarter: 2019Q1

REPORT INFORMATION
  Report Type: Spontaneous
  Country: US (occurrence: US)
  Receive Date: 20190301
  Receipt Date: 20190301
  Transmission Date: 20190418
  Serious: Yes (Other)
  Sender: FDA-Public Use
  Company Number: US-ASTRAZENECA-2019SE34528

PATIENT
  Age: 83 Year
  Sex: Female
  Weight: 83.5 kg

DRUGS (3)
  1. NEXIUM 24HR [Suspect]
     Active Substance: ESOMEPRAZOLE MAGNESIUM
     Indication: DYSPEPSIA
     Dosage: 20 MG, 1X/DAY (EVERY MORNING)
     Route: 048
  2. ELIQUIS [Concomitant]
     Active Substance: APIXABAN
     Route: 048
  3. NEXIUM 24HR [Suspect]
     Active Substance: ESOMEPRAZOLE MAGNESIUM
     Indication: GASTROOESOPHAGEAL REFLUX DISEASE
     Dosage: 20 MG, 1X/DAY (EVERY MORNING)
     Route: 048

REACTIONS (2)
  - Intentional product use issue [Unknown]
  - Ulcer haemorrhage [Unknown]
